FAERS Safety Report 12507061 (Version 1)
Quarter: 2016Q2

REPORT INFORMATION
  Report Type: Spontaneous
  Country: US (occurrence: US)
  Receive Date: 20160629
  Receipt Date: 20160629
  Transmission Date: 20160815
  Serious: No
  Sender: FDA-Public Use
  Company Number: US-BIOGEN-2016BI00255262

PATIENT
  Sex: Female

DRUGS (1)
  1. TECFIDERA [Suspect]
     Active Substance: DIMETHYL FUMARATE
     Indication: MULTIPLE SCLEROSIS
     Route: 065
     Dates: start: 20140625

REACTIONS (6)
  - Memory impairment [Unknown]
  - Rosacea [Unknown]
  - Feeling hot [Unknown]
  - Drug dose omission [Unknown]
  - Flushing [Not Recovered/Not Resolved]
  - Muscle twitching [Not Recovered/Not Resolved]
